FAERS Safety Report 5078519-2 (Version None)
Quarter: 2006Q3

REPORT INFORMATION
  Report Type: 
  Country: None (occurrence: None)
  Receive Date: 20060811
  Receipt Date: 20060803
  Transmission Date: 20061208
  Serious: Yes (Hospitalization)
  Sender: FDA-Public Use
  Company Number: US-ABBOTT-06P-163-0339525-00

PATIENT
  Sex: Female

DRUGS (8)
  1. KALETRA [Suspect]
     Indication: HIV TEST POSITIVE
     Route: 048
     Dates: start: 20060714
  2. TRUVADA [Concomitant]
     Indication: HIV TEST POSITIVE
     Route: 048
  3. SETRALINE HCL [Concomitant]
     Indication: DEPRESSION
     Route: 048
  4. OLANZAPINE [Concomitant]
     Indication: BIPOLAR DISORDER
     Route: 048
  5. ZOLPIDEM TARTRATE [Concomitant]
     Indication: INSOMNIA
     Route: 048
  6. GABAPENTIN [Concomitant]
     Indication: NEUROPATHY PERIPHERAL
     Route: 048
  7. DRONABINOL [Concomitant]
     Indication: DRUG USE FOR UNKNOWN INDICATION
     Route: 048
  8. VICODIN [Concomitant]
     Indication: PAIN
     Route: 048

REACTIONS (2)
  - AMNESIA [None]
  - PLEURISY [None]
